FAERS Safety Report 17237215 (Version 1)
Quarter: 2020Q1

REPORT INFORMATION
  Report Type: Spontaneous
  Country: US (occurrence: US)
  Receive Date: 20200106
  Receipt Date: 20200106
  Transmission Date: 20200409
  Serious: Yes (Hospitalization)
  Sender: FDA-Public Use
  Company Number: US-PROCTER_AND_GAMBLE-GS19128563

PATIENT
  Age: 63 Year
  Sex: Male

DRUGS (2)
  1. METAMUCIL THERAPY FOR REGULARITY [Suspect]
     Active Substance: PSYLLIUM HUSK
     Indication: DIARRHOEA
     Dosage: 1 TBSP EVERY MORNING IN 8 OZ WATER; ON AND OFF FOR THE LAST THREE MONTHS
     Route: 048
  2. METAMUCIL THERAPY FOR REGULARITY [Suspect]
     Active Substance: PSYLLIUM HUSK
     Dosage: 1 TBSP, EVERY DAY TO EVERY OTHER DAY
     Route: 048
     Dates: start: 201909

REACTIONS (1)
  - Peripheral swelling [Not Recovered/Not Resolved]

NARRATIVE: CASE EVENT DATE: 2019
